FAERS Safety Report 9626826 (Version 2)
Quarter: 2013Q4

REPORT INFORMATION
  Report Type: Spontaneous
  Country: AU (occurrence: AU)
  Receive Date: 20131016
  Receipt Date: 20131022
  Transmission Date: 20140711
  Serious: Yes (Other)
  Sender: FDA-Public Use
  Company Number: AU-ROCHE-1288566

PATIENT
  Age: 65 Year
  Sex: 0

DRUGS (2)
  1. HERCEPTIN [Suspect]
     Indication: BREAST CANCER METASTATIC
     Dosage: STARTED 1.5 YEARS AGO
     Route: 042
  2. ABRAXANE [Concomitant]

REACTIONS (1)
  - Disease progression [Not Recovered/Not Resolved]
